FAERS Safety Report 5966218-1 (Version None)
Quarter: 2008Q4

REPORT INFORMATION
  Report Type: 
  Country: None (occurrence: None)
  Receive Date: 20081125
  Receipt Date: 20081117
  Transmission Date: 20090506
  Serious: Yes (Life-Threatening)
  Sender: FDA-Public Use
  Company Number: FR-AVENTIS-200814040FR

PATIENT
  Age: 78 Year
  Sex: Female

DRUGS (4)
  1. LASIX [Suspect]
     Indication: DRUG USE FOR UNKNOWN INDICATION
     Route: 048
  2. RENITEC                            /00574901/ [Suspect]
     Route: 048
     Dates: end: 20080530
  3. PREVISCAN                          /00789001/ [Suspect]
     Indication: PHLEBITIS
     Route: 048
     Dates: end: 20080530
  4. CRESTOR [Suspect]
     Route: 048
     Dates: start: 20080415, end: 20080530

REACTIONS (1)
  - RENAL FAILURE ACUTE [None]
